FAERS Safety Report 10246846 (Version 2)
Quarter: 2014Q4

REPORT INFORMATION
  Report Type: Spontaneous
  Country: IT (occurrence: IT)
  Receive Date: 20140619
  Receipt Date: 20141117
  Transmission Date: 20150528
  Serious: Yes (Other)
  Sender: FDA-Public Use
  Company Number: IT-MERCK-1406ITA007729

PATIENT
  Age: 70 Year
  Sex: Male
  Weight: 80 kg

DRUGS (4)
  1. TELAPREVIR [Suspect]
     Active Substance: TELAPREVIR
     Indication: CHRONIC HEPATITIS C
     Dosage: 2250 MG DAILY
     Route: 048
     Dates: start: 20131126, end: 20140304
  2. PEGASYS [Suspect]
     Active Substance: PEGINTERFERON ALFA-2A
     Indication: CHRONIC HEPATITIS C
     Dosage: 180 MICROGRAM, WEEKLY
     Route: 058
     Dates: start: 20131018
  3. REBETOL [Suspect]
     Active Substance: RIBAVIRIN
     Dosage: TOTAL DAILY DOSE: 1200 MG DAILY
     Route: 048
     Dates: start: 2014
  4. REBETOL [Suspect]
     Active Substance: RIBAVIRIN
     Indication: CHRONIC HEPATITIS C
     Dosage: TOTAL DAILY DOSE: 1200 MG DAILY
     Route: 048
     Dates: start: 20131018, end: 20140304

REACTIONS (1)
  - Rash [Recovered/Resolved]

NARRATIVE: CASE EVENT DATE: 20140304
